FAERS Safety Report 10632416 (Version 2)
Quarter: 2014Q4

REPORT INFORMATION
  Report Type: Spontaneous
  Country: US (occurrence: US)
  Receive Date: 20141205
  Receipt Date: 20141205
  Transmission Date: 20150529
  Serious: No
  Sender: FDA-Public Use
  Company Number: US-BRISTOL-MYERS SQUIBB COMPANY-21465067

PATIENT
  Age: 41 Year
  Sex: Male

DRUGS (1)
  1. SPRYCEL [Suspect]
     Active Substance: DASATINIB
     Indication: CHRONIC MYELOID LEUKAEMIA
     Route: 048
     Dates: start: 20140402

REACTIONS (4)
  - Constipation [Recovering/Resolving]
  - Diarrhoea [Recovering/Resolving]
  - Musculoskeletal discomfort [Recovering/Resolving]
  - Fatigue [Recovering/Resolving]
